FAERS Safety Report 21267038 (Version 1)
Quarter: 2022Q3

REPORT INFORMATION
  Report Type: Report from Study
  Country: TW (occurrence: None)
  Receive Date: 20220829
  Receipt Date: 20220829
  Transmission Date: 20221027
  Serious: Yes (Other)
  Sender: FDA-Public Use
  Company Number: 2022A292119

PATIENT
  Age: 6205 Day
  Sex: Male

DRUGS (1)
  1. KOSELUGO [Suspect]
     Active Substance: SELUMETINIB
     Indication: Neurofibromatosis
     Route: 048
     Dates: start: 20220804, end: 20220811

REACTIONS (4)
  - Pyrexia [Recovered/Resolved]
  - Rash [Recovered/Resolved]
  - Skin lesion [Unknown]
  - Pustule [Unknown]

NARRATIVE: CASE EVENT DATE: 20220812
